FAERS Safety Report 15821972 (Version 1)
Quarter: 2019Q1

REPORT INFORMATION
  Report Type: Spontaneous
  Country: US (occurrence: US)
  Receive Date: 20190114
  Receipt Date: 20190114
  Transmission Date: 20190417
  Serious: Yes (Disabling)
  Sender: FDA-Public Use
  Company Number: None

PATIENT
  Age: 82 Year
  Sex: Male
  Weight: 76.4 kg

DRUGS (7)
  1. PIPERACILLIN AND TAZOBACTAM [Suspect]
     Active Substance: PIPERACILLIN SODIUM\TAZOBACTAM SODIUM
     Indication: SEPSIS
     Route: 042
     Dates: start: 20181231, end: 20190103
  2. DONEPEZIL 5 MG PO QHS [Concomitant]
  3. INSULIN DETEMIR 5 UNITS SQ Q12H [Concomitant]
  4. ATORVASTATIN 40 MG PO QHS [Concomitant]
  5. ENOXAPARIN 40 MG SQ Q24H [Concomitant]
  6. VANCOMYCIN [Suspect]
     Active Substance: VANCOMYCIN
     Indication: SEPSIS
     Route: 042
     Dates: start: 20181231, end: 20190103
  7. PANTOPRAZOLE 40 MG PO BID [Concomitant]

REACTIONS (2)
  - Acute kidney injury [None]
  - Haemodialysis [None]

NARRATIVE: CASE EVENT DATE: 20190104
